FAERS Safety Report 7338715-8 (Version None)
Quarter: 2011Q1

REPORT INFORMATION
  Report Type: 
  Country: None (occurrence: None)
  Receive Date: 20110308
  Receipt Date: 20110209
  Transmission Date: 20110831
  Serious: Yes (Life-Threatening)
  Sender: FDA-Public Use
  Company Number: B0699116A

PATIENT
  Sex: Female

DRUGS (9)
  1. MIDODRINE HYDROCHLORIDE [Concomitant]
     Route: 048
  2. MAGMITT [Concomitant]
     Route: 048
  3. ZOPICOOL [Concomitant]
     Route: 048
  4. HIBERNA [Concomitant]
     Route: 048
  5. SENNARIDE [Concomitant]
     Route: 048
  6. TRIHEXYPHENIDYL HCL [Concomitant]
     Route: 048
  7. RISUMIC [Concomitant]
     Route: 048
  8. PAXIL [Suspect]
     Indication: DEPRESSION
     Dosage: 20MG PER DAY
     Route: 048
     Dates: start: 20101129
  9. SILECE [Concomitant]
     Route: 048

REACTIONS (8)
  - TACHYCARDIA [None]
  - AGITATION [None]
  - BODY TEMPERATURE INCREASED [None]
  - STUPOR [None]
  - MYDRIASIS [None]
  - SEROTONIN SYNDROME [None]
  - ALTERED STATE OF CONSCIOUSNESS [None]
  - MYOCLONUS [None]
